FAERS Safety Report 19581082 (Version 1)
Quarter: 2021Q3

REPORT INFORMATION
  Report Type: Spontaneous
  Country: RU (occurrence: RU)
  Receive Date: 20210720
  Receipt Date: 20210720
  Transmission Date: 20211014
  Serious: Yes (Hospitalization)
  Sender: FDA-Public Use
  Company Number: RU-TOPROL-2021000145

PATIENT
  Sex: Female

DRUGS (1)
  1. BETALOC [Suspect]
     Active Substance: METOPROLOL
     Route: 048

REACTIONS (1)
  - Drug ineffective [Unknown]
